FAERS Safety Report 4360244-4 (Version None)
Quarter: 2004Q2

REPORT INFORMATION
  Report Type: 
  Country: None (occurrence: None)
  Receive Date: 20040513
  Receipt Date: 20040426
  Transmission Date: 20050107
  Serious: Yes (Hospitalization)
  Sender: FDA-Public Use
  Company Number: 6008579

PATIENT
  Age: 84 Year
  Sex: Male

DRUGS (3)
  1. DETENSIEL (10 MG, TABLETS) (BISOPROLOL FUMARATE) [Suspect]
     Indication: DRUG USE FOR UNKNOWN INDICATION
     Dosage: 5 MG (10 MG, 1 IN 1 D), ORAL
     Route: 048
     Dates: start: 20040315, end: 20040320
  2. PENTASA (500 MG, TABLETS) (MESALAZINE) [Concomitant]
  3. LOXEN (50 MG, CAPSULES) (NICARDIPINE HYDROCHLORIDE) [Concomitant]

REACTIONS (7)
  - COMA [None]
  - CONVULSION [None]
  - DEMYELINATION [None]
  - ELECTROENCEPHALOGRAM ABNORMAL [None]
  - EPILEPSY [None]
  - MENINGITIS VIRAL [None]
  - VENTRICULAR TACHYCARDIA [None]
